FAERS Safety Report 26183964 (Version 1)
Quarter: 2025Q4

REPORT INFORMATION
  Report Type: Spontaneous
  Country: US (occurrence: US)
  Receive Date: 20251222
  Receipt Date: 20251222
  Transmission Date: 20260117
  Serious: Yes (Life-Threatening, Hospitalization)
  Sender: MACLEODS
  Company Number: US-MLMSERVICE-20251204-PI738681-00201-1

PATIENT

DRUGS (2)
  1. LIDOCAINE [Suspect]
     Active Substance: LIDOCAINE
     Indication: Pain in extremity
     Dosage: 4 %
     Route: 065
  2. PHENAZOPYRIDINE [Suspect]
     Active Substance: PHENAZOPYRIDINE
     Indication: Urinary tract infection
     Dosage: DAILY PHENAZOPYRIDINE (AZO)
     Route: 065

REACTIONS (4)
  - Encephalopathy [Recovering/Resolving]
  - Sulphaemoglobinaemia [Recovering/Resolving]
  - Anaemia [Recovering/Resolving]
  - Methaemoglobinaemia [Recovered/Resolved]
